FAERS Safety Report 8240327-9 (Version None)
Quarter: 2012Q1

REPORT INFORMATION
  Report Type: 
  Country: None (occurrence: None)
  Receive Date: 20120328
  Receipt Date: 20120328
  Transmission Date: 20120608
  Serious: Yes (Other)
  Sender: FDA-Public Use
  Company Number: None

PATIENT
  Age: 65 Year
  Sex: Male
  Weight: 90.718 kg

DRUGS (2)
  1. NASONEX [Suspect]
     Indication: SINUS CONGESTION
     Dosage: 2 SPRAYS IN EACH NOSTRIL
     Route: 045
     Dates: start: 20120322, end: 20120326
  2. NASONEX [Suspect]
     Indication: DYSPNOEA
     Dosage: 2 SPRAYS IN EACH NOSTRIL
     Route: 045
     Dates: start: 20120322, end: 20120326

REACTIONS (3)
  - DYSGEUSIA [None]
  - FEELING ABNORMAL [None]
  - HYPOAESTHESIA ORAL [None]
